FAERS Safety Report 15316248 (Version 4)
Quarter: 2019Q1

REPORT INFORMATION
  Report Type: Report from Study
  Country: US (occurrence: US)
  Receive Date: 20180824
  Receipt Date: 20190102
  Transmission Date: 20190417
  Serious: Yes (Hospitalization, Other)
  Sender: FDA-Public Use
  Company Number: US-TAKEDA-2018TUS025228

PATIENT
  Sex: Male
  Weight: 79.37 kg

DRUGS (6)
  1. PONATINIB [Suspect]
     Active Substance: PONATINIB
     Indication: ACUTE LYMPHOCYTIC LEUKAEMIA
     Dosage: 30 MG, QD
     Route: 048
     Dates: start: 20180726, end: 20181221
  2. OXYCODONE [Concomitant]
     Active Substance: OXYCODONE
     Dosage: UNK UNK, Q3HR
     Route: 065
  3. DEXAMETHASONE. [Concomitant]
     Active Substance: DEXAMETHASONE
     Dosage: 0.5 MG, UNK
     Route: 065
  4. GABAPENTIN. [Concomitant]
     Active Substance: GABAPENTIN
     Dosage: UNK
     Route: 065
  5. OXYCODONE [Concomitant]
     Active Substance: OXYCODONE
     Dosage: UNK
     Route: 065
  6. DEXAMETHASONE. [Concomitant]
     Active Substance: DEXAMETHASONE
     Dosage: UNK
     Route: 065

REACTIONS (7)
  - Spinal cord injury [Not Recovered/Not Resolved]
  - Catheter site inflammation [Recovered/Resolved]
  - Drug ineffective [Unknown]
  - Blood count abnormal [Recovering/Resolving]
  - Clostridium difficile colitis [Recovered/Resolved]
  - Urinary tract infection [Unknown]
  - Sepsis [Recovering/Resolving]
